FAERS Safety Report 4322539-X (Version None)
Quarter: 2004Q1

REPORT INFORMATION
  Report Type: 
  Country: None (occurrence: None)
  Receive Date: 20040319
  Receipt Date: 20040308
  Transmission Date: 20041129
  Serious: Yes (Hospitalization, Other)
  Sender: FDA-Public Use
  Company Number: 2003124123

PATIENT
  Age: 63 Year
  Sex: Male

DRUGS (7)
  1. ATARAX [Suspect]
     Indication: ILL-DEFINED DISORDER
     Dosage: 25 MG (DAILY), ORAL
     Route: 048
     Dates: start: 20030910, end: 20031105
  2. VALPROATE SODIUM [Suspect]
     Indication: ILL-DEFINED DISORDER
     Dosage: 1000 MG (DAILY), ORAL
     Route: 048
     Dates: start: 20030410, end: 20031105
  3. MEPROBAMATE [Suspect]
     Indication: ILL-DEFINED DISORDER
     Dosage: 750 MG (DAILY), ORAL
     Route: 048
     Dates: start: 20030929, end: 20031105
  4. CEFTRIAXONE [Suspect]
     Indication: ILL-DEFINED DISORDER
     Dosage: 2 GRAM(DAILY), INTRAVENOUS
     Route: 042
     Dates: start: 20031104, end: 20031119
  5. OFLOXACIN (OFLOXACIN) [Suspect]
     Indication: ILL-DEFINED DISORDER
     Dosage: 40 MG (DAILY), ORAL
     Route: 048
     Dates: start: 20031104, end: 20031119
  6. HEPARIN -FRACTION, CALCIUM SALT (HEAPRIN  FRACTION, CALCIUM SALT) [Concomitant]
  7. VITAMIN B1 AND B6 (THIAMINE, PYRIDOXINE) [Concomitant]

REACTIONS (12)
  - AGRANULOCYTOSIS [None]
  - BIOPSY BONE MARROW ABNORMAL [None]
  - BRAIN CONTUSION [None]
  - CHILLS [None]
  - HAEMOGLOBIN DECREASED [None]
  - HAEMORRHAGE [None]
  - HEAD INJURY [None]
  - HEMIPLEGIA [None]
  - LOCKED-IN SYNDROME [None]
  - LUNG DISORDER [None]
  - PYREXIA [None]
  - ROAD TRAFFIC ACCIDENT [None]
